FAERS Safety Report 6445815-3 (Version None)
Quarter: 2009Q4

REPORT INFORMATION
  Report Type: 
  Country: None (occurrence: None)
  Receive Date: 20091119
  Receipt Date: 20091111
  Transmission Date: 20100525
  Serious: Yes (Hospitalization)
  Sender: FDA-Public Use
  Company Number: US-BIOGENIDEC-2009BI021961

PATIENT
  Age: 48 Year
  Sex: Female
  Weight: 45 kg

DRUGS (1)
  1. AVONEX [Suspect]
     Indication: MULTIPLE SCLEROSIS
     Route: 030
     Dates: start: 20081001, end: 20090601

REACTIONS (4)
  - IRON DEFICIENCY ANAEMIA [None]
  - RECTAL HAEMORRHAGE [None]
  - ULCER HAEMORRHAGE [None]
  - UPPER GASTROINTESTINAL HAEMORRHAGE [None]
